FAERS Safety Report 4834584-6 (Version None)
Quarter: 2005Q4

REPORT INFORMATION
  Report Type: 
  Country: None (occurrence: None)
  Receive Date: 20051122
  Receipt Date: 20050419
  Transmission Date: 20060501
  Serious: No
  Sender: FDA-Public Use
  Company Number: US-BRISTOL-MYERS SQUIBB COMPANY-12939708

PATIENT
  Sex: Male
  Weight: 73 kg

DRUGS (2)
  1. PRAVASTATIN SODIUM [Suspect]
  2. RAMIPRIL [Suspect]

REACTIONS (2)
  - ASTHENIA [None]
  - OEDEMA [None]
